FAERS Safety Report 6030641-X (Version None)
Quarter: 2009Q1

REPORT INFORMATION
  Report Type: 
  Country: None (occurrence: None)
  Receive Date: 20090107
  Receipt Date: 20081231
  Transmission Date: 20090719
  Serious: Yes (Hospitalization)
  Sender: FDA-Public Use
  Company Number: GB-GILEAD-2009-0019693

PATIENT
  Age: 20 Year
  Sex: Male

DRUGS (5)
  1. VIREAD [Suspect]
     Route: 048
     Dates: start: 20081024, end: 20081102
  2. EMTRIVA [Suspect]
     Route: 048
     Dates: start: 20081024, end: 20081102
  3. DARUNAVIR [Concomitant]
     Route: 048
     Dates: start: 20081024, end: 20081102
  4. ETRAVIRINE [Concomitant]
     Route: 048
     Dates: start: 20081024, end: 20081102
  5. NORVIR [Concomitant]
     Route: 048
     Dates: start: 20081024, end: 20081102

REACTIONS (3)
  - ORAL DISORDER [None]
  - STEVENS-JOHNSON SYNDROME [None]
  - URTICARIA [None]
